FAERS Safety Report 7893534-9 (Version None)
Quarter: 2011Q4

REPORT INFORMATION
  Report Type: 
  Country: None (occurrence: None)
  Receive Date: 20111104
  Receipt Date: 20111024
  Transmission Date: 20120403
  Serious: Yes (Other)
  Sender: FDA-Public Use
  Company Number: JP-MERCK-1110USA04481

PATIENT
  Age: 70 Year
  Sex: Male

DRUGS (2)
  1. PEPCID RPD [Suspect]
     Route: 048
  2. FAMOTIDINE [Concomitant]
     Route: 048

REACTIONS (1)
  - INSULIN AUTOIMMUNE SYNDROME [None]
